FAERS Safety Report 12497550 (Version 3)
Quarter: 2016Q4

REPORT INFORMATION
  Report Type: Spontaneous
  Country: JP (occurrence: JP)
  Receive Date: 20160625
  Receipt Date: 20161222
  Transmission Date: 20170207
  Serious: Yes (Death, Hospitalization, Other)
  Sender: FDA-Public Use
  Company Number: PHJP2016JP017718

PATIENT
  Age: 76 Year
  Sex: Female

DRUGS (6)
  1. RED BLOOD CELLS, CONCENTRATED [Concomitant]
     Active Substance: HUMAN RED BLOOD CELL
     Indication: MYELODYSPLASTIC SYNDROME
     Dosage: UNK
     Route: 041
  2. METHYCOBAL [Concomitant]
     Active Substance: METHYLCOBALAMIN
     Indication: MYELODYSPLASTIC SYNDROME
     Dosage: 500 UG, BID
     Route: 048
     Dates: start: 201412
  3. EXJADE [Suspect]
     Active Substance: DEFERASIROX
     Indication: MYELODYSPLASTIC SYNDROME
     Dosage: 500 MG, QD
     Route: 048
     Dates: start: 20150409, end: 20150423
  4. RED BLOOD CELLS, CONCENTRATED [Concomitant]
     Active Substance: HUMAN RED BLOOD CELL
     Dosage: 6 IU, UNK
     Route: 041
  5. JUZENTAIHOTO [Concomitant]
     Indication: MYELODYSPLASTIC SYNDROME
     Dosage: 2.5, 10QD
     Route: 048
     Dates: start: 201412
  6. LANSOPRAZOLE. [Concomitant]
     Active Substance: LANSOPRAZOLE
     Indication: GASTRITIS
     Dosage: 15 MG, QD
     Route: 048
     Dates: start: 201412

REACTIONS (11)
  - Urticaria [Unknown]
  - Purulence [Recovered/Resolved]
  - Scratch [Recovering/Resolving]
  - Myelodysplastic syndrome [Recovering/Resolving]
  - Disease progression [Recovering/Resolving]
  - Eczema [Recovering/Resolving]
  - Pneumonia [Fatal]
  - Hyperthermia [Recovering/Resolving]
  - Rash generalised [Recovered/Resolved]
  - Pruritus [Recovered/Resolved]
  - White blood cell count decreased [Unknown]

NARRATIVE: CASE EVENT DATE: 20150409
